FAERS Safety Report 18353466 (Version 1)
Quarter: 2020Q4

REPORT INFORMATION
  Report Type: Spontaneous
  Country: US (occurrence: US)
  Receive Date: 20201006
  Receipt Date: 20201006
  Transmission Date: 20210114
  Serious: No
  Sender: FDA-Public Use
  Company Number: US-ALLERGAN-2031026US

PATIENT
  Sex: Male

DRUGS (4)
  1. LINZESS [Suspect]
     Active Substance: LINACLOTIDE
     Indication: CONSTIPATION
     Dosage: 72 ?G
     Route: 065
     Dates: start: 202008
  2. VITAMINS [Concomitant]
     Active Substance: VITAMINS
  3. ASPIRIN. [Concomitant]
     Active Substance: ASPIRIN
  4. CARTIA XT [Concomitant]
     Active Substance: DILTIAZEM HYDROCHLORIDE
     Indication: ATRIAL FIBRILLATION

REACTIONS (1)
  - Drug ineffective [Unknown]
